FAERS Safety Report 6081570-7 (Version None)
Quarter: 2009Q1

REPORT INFORMATION
  Report Type: 
  Country: None (occurrence: None)
  Receive Date: 20090218
  Receipt Date: 20081215
  Transmission Date: 20090719
  Serious: No
  Sender: FDA-Public Use
  Company Number: US-BAYER-200841204NA

PATIENT
  Age: 34 Year
  Sex: Female
  Weight: 54 kg

DRUGS (2)
  1. MIRENA [Suspect]
     Indication: CONTRACEPTION
     Route: 015
     Dates: start: 20081205, end: 20081213
  2. ADVAIR DISKUS 100/50 [Concomitant]

REACTIONS (5)
  - DRUG HYPERSENSITIVITY [None]
  - GENITAL BURNING SENSATION [None]
  - GENITAL DISCOMFORT [None]
  - PRURITUS [None]
  - VAGINAL DISCHARGE [None]
